FAERS Safety Report 8161217-6 (Version None)
Quarter: 2012Q1

REPORT INFORMATION
  Report Type: 
  Country: None (occurrence: None)
  Receive Date: 20120103
  Receipt Date: 20111017
  Transmission Date: 20120608
  Serious: No
  Sender: FDA-Public Use
  Company Number: AE-2011-002091

PATIENT
  Age: 47 Year
  Sex: Female
  Weight: 80.2867 kg

DRUGS (8)
  1. INCIVEK [Suspect]
     Dosage: 2250 MG (750 MG, 3 IN 1 D), ORAL
     Route: 048
     Dates: start: 20110927
  2. ATROVENT [Concomitant]
  3. PREPARATOIN H (PREPARATION H /ISR/) [Concomitant]
  4. PAROXETINE HCL [Concomitant]
  5. RIBAVIRIN [Concomitant]
  6. PEGASYS [Concomitant]
  7. XOPENEX [Concomitant]
  8. ANUCORT (HYDROCORTISONE ACETATE) [Concomitant]

REACTIONS (3)
  - FUNGAL INFECTION [None]
  - ANORECTAL DISCOMFORT [None]
  - HAEMORRHOIDS [None]
